FAERS Safety Report 9184949 (Version 1)
Quarter: 2013Q1

REPORT INFORMATION
  Report Type: Spontaneous
  Country: US (occurrence: US)
  Receive Date: 20130325
  Receipt Date: 20130325
  Transmission Date: 20140127
  Serious: No
  Sender: FDA-Public Use
  Company Number: US-BRISTOL-MYERS SQUIBB COMPANY-16542615

PATIENT
  Age: 88 Year
  Sex: Female

DRUGS (1)
  1. ERBITUX [Suspect]
     Indication: TONGUE DISORDER
     Dosage: RECEIVED 4 TREATMENTS,HELD FOR A WEEK
     Dates: start: 20111224

REACTIONS (1)
  - Rash [Recovered/Resolved]
